FAERS Safety Report 21135817 (Version 2)
Quarter: 2022Q3

REPORT INFORMATION
  Report Type: Spontaneous
  Country: DE (occurrence: DE)
  Receive Date: 20220727
  Receipt Date: 20220727
  Transmission Date: 20221027
  Serious: Yes (Death)
  Sender: FDA-Public Use
  Company Number: DE-AMGEN-DEUSP2022126026

PATIENT

DRUGS (3)
  1. BEVACIZUMAB [Suspect]
     Active Substance: BEVACIZUMAB
     Indication: Colorectal cancer metastatic
     Dosage: 5 MILLIGRAM/KILOGRAMS
     Route: 065
  2. FLUOROURACIL [Suspect]
     Active Substance: FLUOROURACIL
     Indication: Colorectal cancer metastatic
     Route: 065
  3. FLAVIN ADENINE DINUCLEOTIDE DISODIUM [Suspect]
     Active Substance: FLAVIN ADENINE DINUCLEOTIDE DISODIUM
     Indication: Colorectal cancer metastatic
     Route: 065

REACTIONS (1)
  - Death [Fatal]
